FAERS Safety Report 4345838-4 (Version None)
Quarter: 2004Q2

REPORT INFORMATION
  Report Type: 
  Country: None (occurrence: None)
  Receive Date: 20040423
  Receipt Date: 20040423
  Transmission Date: 20050107
  Serious: Yes (Other)
  Sender: FDA-Public Use
  Company Number: None

PATIENT
  Age: 14 Year
  Sex: Female
  Weight: 159.6662 kg

DRUGS (2)
  1. GENERIC ORTHO CYCLEN SPINTEC [Suspect]
     Indication: HIRSUTISM
     Dosage: DAILY ORAL
     Route: 048
     Dates: start: 20040323, end: 20040423
  2. GENERIC ORTHO CYCLEN SPINTEC [Suspect]
     Indication: INSULIN RESISTANCE
     Dosage: DAILY ORAL
     Route: 048
     Dates: start: 20040323, end: 20040423

REACTIONS (2)
  - METRORRHAGIA [None]
  - PHARMACEUTICAL PRODUCT COMPLAINT [None]
